FAERS Safety Report 6043515-5 (Version None)
Quarter: 2009Q1

REPORT INFORMATION
  Report Type: 
  Country: None (occurrence: None)
  Receive Date: 20090115
  Receipt Date: 20090102
  Transmission Date: 20090719
  Serious: Yes (Life-Threatening)
  Sender: FDA-Public Use
  Company Number: 2009S1000238

PATIENT
  Age: 56 Year
  Sex: Male

DRUGS (10)
  1. METFORMIN HCL [Suspect]
     Indication: DIABETES MELLITUS
     Dosage: 100 MG; ORAL
     Route: 048
  2. LOSARTAN POTASSIUM [Suspect]
     Indication: HYPERTENSION
     Dosage: 1 GM;  ORAL ; Q8H
     Route: 048
  3. AMLODIPINE [Concomitant]
  4. ASPIRIN [Concomitant]
  5. ATORVASTATIN CALCIUM [Concomitant]
  6. BENDROFLUMETHIAZIDE (BENDROFLUMETHIAZIDE) [Concomitant]
  7. DOXAZOCIN (DOXAZOCIN MESILATE) [Concomitant]
  8. MINOCYCLINE HCL [Concomitant]
  9. SILDENAFIL CITRATE [Concomitant]
  10. SILDENAFIL CITRATE [Concomitant]

REACTIONS (3)
  - HAEMATEMESIS [None]
  - LACTIC ACIDOSIS [None]
  - RENAL FAILURE ACUTE [None]
